FAERS Safety Report 6108732-4 (Version None)
Quarter: 2009Q1

REPORT INFORMATION
  Report Type: 
  Country: None (occurrence: None)
  Receive Date: 20090306
  Receipt Date: 20090306
  Transmission Date: 20090719
  Serious: Yes (Life-Threatening, Other)
  Sender: FDA-Public Use
  Company Number: None

PATIENT
  Sex: Female
  Weight: 90.7194 kg

DRUGS (3)
  1. SPIRONOLACTONE [Suspect]
     Indication: WEIGHT DECREASED
     Dosage: 100 MCG ONCE A DAY RX7045669
     Dates: start: 20080101
  2. SYNTHROID [Suspect]
     Indication: HYPOTHYROIDISM
     Dosage: 100 MG ONCE A DAY RX 7052810
     Dates: start: 20080101
  3. SYNTHROID [Suspect]
     Indication: HYPOTHYROIDISM
     Dosage: 100 MG ONCE A DAY RX 7052810
     Dates: start: 20080924

REACTIONS (1)
  - HYPOTENSION [None]
